FAERS Safety Report 15007431 (Version 3)
Quarter: 2018Q3

REPORT INFORMATION
  Report Type: Report from Study
  Country: US (occurrence: US)
  Receive Date: 20180613
  Receipt Date: 20180813
  Transmission Date: 20181010
  Serious: Yes (Hospitalization, Other)
  Sender: FDA-Public Use
  Company Number: US-GILEAD-2018-0341786

PATIENT
  Age: 66 Year
  Sex: Female

DRUGS (2)
  1. AMBRISENTAN [Suspect]
     Active Substance: AMBRISENTAN
     Indication: PRODUCT USED FOR UNKNOWN INDICATION
     Dosage: 10 MG, QD
     Route: 065
     Dates: start: 20140527
  2. AMBRISENTAN [Suspect]
     Active Substance: AMBRISENTAN
     Dosage: 5 MG, QD
     Route: 065
     Dates: start: 20140527

REACTIONS (17)
  - Malaise [Unknown]
  - Weight bearing difficulty [Unknown]
  - Pollakiuria [Not Recovered/Not Resolved]
  - Headache [Unknown]
  - Oedema peripheral [Not Recovered/Not Resolved]
  - Blood pressure abnormal [Unknown]
  - Muscular weakness [Not Recovered/Not Resolved]
  - Intentional underdose [Not Recovered/Not Resolved]
  - Loss of consciousness [Unknown]
  - Swelling [Recovering/Resolving]
  - Asthenia [Unknown]
  - Blood pressure decreased [Unknown]
  - Fatigue [Unknown]
  - Intentional product use issue [Unknown]
  - Gait disturbance [Unknown]
  - Insomnia [Not Recovered/Not Resolved]
  - Dizziness [Unknown]
